FAERS Safety Report 19806816 (Version 1)
Quarter: 2021Q3

REPORT INFORMATION
  Report Type: Other
  Country: GR (occurrence: GR)
  Receive Date: 20210909
  Receipt Date: 20210909
  Transmission Date: 20211014
  Serious: Yes (Other)
  Sender: FDA-Public Use
  Company Number: GR-ROCHE-2906003

PATIENT

DRUGS (4)
  1. MYCOPHENOLATE MOFETIL. [Suspect]
     Active Substance: MYCOPHENOLATE MOFETIL
     Indication: AUTOIMMUNE HEPATITIS
     Route: 065
  2. MYCOPHENOLATE MOFETIL. [Suspect]
     Active Substance: MYCOPHENOLATE MOFETIL
     Dosage: AT 1 G/D, AND AFTER 3 WEEK, THE DOSE WAS GRADUALLY INCREASED TO 1.5?2 G/D, WHICH WAS MAINTAINED FOR
     Route: 065
  3. AZATHIOPRINE. [Suspect]
     Active Substance: AZATHIOPRINE
     Indication: AUTOIMMUNE HEPATITIS
     Dosage: 1?2 MG/KG/DAY
     Route: 065
  4. PREDNISOLONE. [Suspect]
     Active Substance: PREDNISOLONE
     Indication: AUTOIMMUNE HEPATITIS
     Dosage: 0.5?1 MG/KG/DAY
     Route: 065

REACTIONS (12)
  - Abdominal pain [Unknown]
  - Glaucoma [Unknown]
  - Osteoporosis [Unknown]
  - Diabetes mellitus [Unknown]
  - Acne [Unknown]
  - Neutropenia [Unknown]
  - Sepsis [Unknown]
  - Skin cancer [Unknown]
  - Infection [Unknown]
  - Myopathy [Unknown]
  - Diarrhoea [Unknown]
  - Cushing^s syndrome [Unknown]
